FAERS Safety Report 11283634 (Version 1)
Quarter: 2015Q3

REPORT INFORMATION
  Report Type: Spontaneous
  Country: US (occurrence: US)
  Receive Date: 20150720
  Receipt Date: 20150720
  Transmission Date: 20151125
  Serious: No
  Sender: FDA-Public Use
  Company Number: US-PFIZER INC-2015236563

PATIENT
  Age: 41 Year
  Sex: Male
  Weight: 74.83 kg

DRUGS (2)
  1. LYRICA [Suspect]
     Active Substance: PREGABALIN
     Indication: FIBROMYALGIA
     Dosage: 200 MG, DAILY
  2. LYRICA [Suspect]
     Active Substance: PREGABALIN
     Indication: INTERVERTEBRAL DISC DEGENERATION
     Dosage: 400 MG, DAILY (DOUBLE ON 200 MG)

REACTIONS (6)
  - Burning sensation [Unknown]
  - Feeling abnormal [Unknown]
  - Intentional product use issue [Unknown]
  - Malaise [Unknown]
  - Pain [Unknown]
  - Drug withdrawal syndrome [Unknown]
